FAERS Safety Report 7722381-3 (Version None)
Quarter: 2011Q3

REPORT INFORMATION
  Report Type: 
  Country: None (occurrence: None)
  Receive Date: 20110831
  Receipt Date: 20110831
  Transmission Date: 20111222
  Serious: Yes (Hospitalization)
  Sender: FDA-Public Use
  Company Number: DE-ABBOTT-11P-062-0849611-00

PATIENT
  Sex: Female

DRUGS (1)
  1. HUMIRA [Suspect]
     Indication: CROHN'S DISEASE
     Route: 058
     Dates: start: 20110715

REACTIONS (5)
  - MUSCLE TWITCHING [None]
  - FALL [None]
  - LOSS OF CONSCIOUSNESS [None]
  - ANAEMIA [None]
  - JOINT SWELLING [None]
